FAERS Safety Report 4449416-8 (Version None)
Quarter: 2004Q3

REPORT INFORMATION
  Report Type: 
  Country: None (occurrence: None)
  Receive Date: 20040914
  Receipt Date: 20040901
  Transmission Date: 20050211
  Serious: Yes (Hospitalization)
  Sender: FDA-Public Use
  Company Number: M2004.1221

PATIENT
  Age: 72 Year
  Sex: Male

DRUGS (7)
  1. RIFAMPICIN [Suspect]
     Indication: STAPHYLOCOCCAL BACTERAEMIA
     Dosage: 600 MG, QD, IV
     Route: 042
     Dates: start: 20040811
  2. EUPANTOL (PANTOPRAZOLE) [Suspect]
     Dosage: 40 MG, QD, IV
     Route: 042
     Dates: start: 20040811
  3. GENTAMICIN [Suspect]
     Indication: STAPHYLOCOCCAL BACTERAEMIA
     Dosage: 300 MG QD; IV
     Route: 042
     Dates: start: 20040811
  4. TARGOCID [Suspect]
     Indication: STAPHYLOCOCCAL BACTERAEMIA
     Dosage: 400 MG, QD, IV
     Route: 042
     Dates: start: 20040811
  5. TEGELINE (IMMUNOGLOBULIN HUMAN NORMAL) [Suspect]
     Dosage: 70 MG, QD, IV
     Route: 042
     Dates: start: 20040813
  6. ORBENIN CAP [Concomitant]
  7. PYOSTCAINE (PRISTINAMYCIN) [Concomitant]

REACTIONS (2)
  - IDIOPATHIC THROMBOCYTOPENIC PURPURA [None]
  - RENAL FAILURE ACUTE [None]
